FAERS Safety Report 6906599-5 (Version None)
Quarter: 2010Q3

REPORT INFORMATION
  Report Type: 
  Country: None (occurrence: None)
  Receive Date: 20100804
  Receipt Date: 20100729
  Transmission Date: 20110219
  Serious: Yes (Death, Other)
  Sender: FDA-Public Use
  Company Number: US-BAYER-201029413NA

PATIENT
  Age: 27 Year
  Sex: Female

DRUGS (2)
  1. YAZ [Suspect]
     Indication: PRODUCT USED FOR UNKNOWN INDICATION
     Dates: start: 20080501
  2. YASMIN [Suspect]
     Indication: PRODUCT USED FOR UNKNOWN INDICATION
     Dates: start: 20080501

REACTIONS (4)
  - DEEP VEIN THROMBOSIS [None]
  - DYSPNOEA [None]
  - GALLBLADDER INJURY [None]
  - PULMONARY EMBOLISM [None]
